FAERS Safety Report 25854342 (Version 2)
Quarter: 2025Q3

REPORT INFORMATION
  Report Type: Report from Study
  Country: US (occurrence: US)
  Receive Date: 20250927
  Receipt Date: 20250930
  Transmission Date: 20251020
  Serious: Yes (Hospitalization, Other)
  Sender: ABBVIE
  Company Number: US-ABBVIE-6473287

PATIENT
  Age: 53 Year
  Sex: Female
  Weight: 70 kg

DRUGS (3)
  1. SKYRIZI [Suspect]
     Active Substance: RISANKIZUMAB-RZAA
     Indication: Crohn^s disease
     Dosage: FORM STRENGTH : 360 MILLIGRAM
     Route: 058
     Dates: start: 20250303
  2. Ramipro [Concomitant]
     Indication: Product used for unknown indication
  3. ADDERALL [Concomitant]
     Active Substance: AMPHETAMINE ASPARTATE\AMPHETAMINE SULFATE\DEXTROAMPHETAMINE SACCHARATE\DEXTROAMPHETAMINE SULFATE
     Indication: Attention deficit hyperactivity disorder

REACTIONS (8)
  - Abdominal pain [Recovering/Resolving]
  - Intestinal resection [Not Recovered/Not Resolved]
  - Injection site urticaria [Recovering/Resolving]
  - Urticaria [Not Recovered/Not Resolved]
  - Urinary tract infection [Recovered/Resolved]
  - Rash [Recovering/Resolving]
  - Intestinal obstruction [Recovering/Resolving]
  - Crohn^s disease [Unknown]

NARRATIVE: CASE EVENT DATE: 20250101
